FAERS Safety Report 4275174-6 (Version None)
Quarter: 2004Q1

REPORT INFORMATION
  Report Type: 
  Country: None (occurrence: None)
  Receive Date: 20040121
  Receipt Date: 20031117
  Transmission Date: 20041129
  Serious: Yes (Other)
  Sender: FDA-Public Use
  Company Number: PHNU2003DE04062

PATIENT
  Sex: Male

DRUGS (5)
  1. PROVAS [Suspect]
     Indication: HYPERTENSION
     Dosage: UNK, UNK
     Route: 048
     Dates: start: 20020701, end: 20031001
  2. PROVAS [Suspect]
     Dosage: 160 MG, ONCE/SINGLE
     Route: 048
     Dates: start: 20020501, end: 20020501
  3. NEBIVOLOL [Concomitant]
     Indication: HYPERTENSION
     Dates: start: 20010401
  4. ACETYLSALICYLIC ACID SRT [Concomitant]
     Indication: HYPERLIPIDAEMIA
     Dates: start: 20010401
  5. PRAVASTATIN SODIUM [Concomitant]
     Indication: CORONARY ARTERY ATHEROSCLEROSIS
     Dates: start: 20010401

REACTIONS (1)
  - HERPES ZOSTER [None]
